FAERS Safety Report 5247554-3 (Version None)
Quarter: 2007Q1

REPORT INFORMATION
  Report Type: 
  Country: None (occurrence: None)
  Receive Date: 20070227
  Receipt Date: 20070216
  Transmission Date: 20070707
  Serious: Yes (Hospitalization)
  Sender: FDA-Public Use
  Company Number: PHBS2007DK03144

PATIENT
  Age: 39 Year
  Sex: Male

DRUGS (1)
  1. DIOVAN COMP [Suspect]
     Indication: HYPERTENSION
     Dosage: VALS 160 / HCT 25 MG/DAY
     Route: 048

REACTIONS (2)
  - CORONARY ARTERY THROMBOSIS [None]
  - PERCUTANEOUS CORONARY INTERVENTION [None]
